FAERS Safety Report 7789347-9 (Version None)
Quarter: 2011Q3

REPORT INFORMATION
  Report Type: 
  Country: None (occurrence: None)
  Receive Date: 20110930
  Receipt Date: 20110923
  Transmission Date: 20111222
  Serious: Yes (Hospitalization)
  Sender: FDA-Public Use
  Company Number: FR-GLAXOSMITHKLINE-B0720635A

PATIENT
  Sex: Female

DRUGS (6)
  1. SPASFON [Concomitant]
     Indication: BACK PAIN
     Route: 048
  2. ATARAX [Concomitant]
     Dosage: 25MG PER DAY
     Route: 048
  3. PYOSTACINE [Suspect]
     Indication: ABDOMINAL PAIN
     Dosage: 500MG TWICE PER DAY
     Route: 048
     Dates: start: 20110126, end: 20110127
  4. NEXIUM [Concomitant]
     Indication: GASTROOESOPHAGEAL REFLUX DISEASE
     Route: 048
  5. VENTOLIN [Suspect]
     Indication: ASTHMA
     Route: 055
  6. DICETEL [Suspect]
     Indication: BACK PAIN
     Dosage: 100MG TWICE PER DAY
     Route: 048
     Dates: start: 20110126, end: 20110127

REACTIONS (10)
  - HYPOTENSION [None]
  - ACUTE GENERALISED EXANTHEMATOUS PUSTULOSIS [None]
  - PAPULE [None]
  - CHILLS [None]
  - TACHYCARDIA [None]
  - RASH PAPULAR [None]
  - ILL-DEFINED DISORDER [None]
  - PRURITUS [None]
  - FEELING COLD [None]
  - PYREXIA [None]
